FAERS Safety Report 8621917-8 (Version None)
Quarter: 2012Q3

REPORT INFORMATION
  Report Type: 
  Country: None (occurrence: None)
  Receive Date: 20120822
  Receipt Date: 20120822
  Transmission Date: 20120928
  Serious: Yes (Hospitalization)
  Sender: FDA-Public Use
  Company Number: None

PATIENT
  Age: 47 Year
  Sex: Male
  Weight: 190 kg

DRUGS (1)
  1. DAPTOMYCIN [Suspect]
     Indication: OSTEOMYELITIS
     Dosage: 1200 MG Q 24 HOURS IV
     Route: 042
     Dates: start: 20120727, end: 20120807

REACTIONS (4)
  - RENAL FAILURE [None]
  - RHABDOMYOLYSIS [None]
  - RESPIRATORY DISTRESS [None]
  - HEPATIC FAILURE [None]
